FAERS Safety Report 8590664-3 (Version None)
Quarter: 2012Q3

REPORT INFORMATION
  Report Type: 
  Country: None (occurrence: None)
  Receive Date: 20120813
  Receipt Date: 20120807
  Transmission Date: 20120928
  Serious: Yes (Other)
  Sender: FDA-Public Use
  Company Number: PHHY2012BR069639

PATIENT
  Sex: Male

DRUGS (1)
  1. DIOVAN HCT [Suspect]
     Dosage: 0.5 DF (320/12.5MG) ONCE A DAY

REACTIONS (2)
  - DEAFNESS [None]
  - WRONG TECHNIQUE IN DRUG USAGE PROCESS [None]
